FAERS Safety Report 6716261-X (Version None)
Quarter: 2010Q2

REPORT INFORMATION
  Report Type: 
  Country: None (occurrence: None)
  Receive Date: 20100507
  Receipt Date: 20100423
  Transmission Date: 20101027
  Serious: No
  Sender: FDA-Public Use
  Company Number: B0626344A

PATIENT
  Sex: Female
  Weight: 61 kg

DRUGS (2)
  1. RELENZA [Suspect]
     Indication: ANTIVIRAL PROPHYLAXIS
     Dosage: 10MG PER DAY
     Route: 055
     Dates: start: 20091212
  2. MAGLAX [Concomitant]
     Indication: CONSTIPATION
     Dosage: 4500MG PER DAY
     Route: 048
     Dates: start: 20091217

REACTIONS (1)
  - DRUG EXPOSURE DURING PREGNANCY [None]
